FAERS Safety Report 13898959 (Version 1)
Quarter: 2017Q3

REPORT INFORMATION
  Report Type: Spontaneous
  Country: US (occurrence: None)
  Receive Date: 20170822
  Receipt Date: 20170822
  Transmission Date: 20171127
  Serious: Yes (Hospitalization)
  Sender: FDA-Public Use
  Company Number: None

PATIENT
  Age: 22 Year
  Sex: Female

DRUGS (2)
  1. MESALAMINE. [Suspect]
     Active Substance: MESALAMINE
     Dates: start: 20101001, end: 20140919
  2. 6-MERCAPTOPURINE [Suspect]
     Active Substance: MERCAPTOPURINE
     Dates: start: 20101001, end: 20140919

REACTIONS (9)
  - Malaise [None]
  - Pyrexia [None]
  - Night sweats [None]
  - Lymphadenopathy [None]
  - Diarrhoea [None]
  - Arthropod bite [None]
  - Drug-induced liver injury [None]
  - Rash erythematous [None]
  - Myalgia [None]

NARRATIVE: CASE EVENT DATE: 20140918
